FAERS Safety Report 12634279 (Version 1)
Quarter: 2016Q3

REPORT INFORMATION
  Report Type: Spontaneous
  Country: GB (occurrence: GB)
  Receive Date: 20160808
  Receipt Date: 20160808
  Transmission Date: 20161109
  Serious: Yes (Life-Threatening, Hospitalization, Disabling, Other)
  Sender: FDA-Public Use
  Company Number: GB-APOTEX-2016AP010216

PATIENT
  Age: 41 Year
  Sex: Female

DRUGS (4)
  1. VENAXX XL PROLONGED-RELEASE CAPSULES [Suspect]
     Active Substance: VENLAFAXINE HYDROCHLORIDE
     Indication: OVERDOSE
     Dosage: UNK, UNKNOWN
     Route: 065
  2. QUETIAPINE. [Suspect]
     Active Substance: QUETIAPINE
     Indication: OVERDOSE
     Dosage: UNK, UNKNOWN
     Route: 065
  3. PROPRANOLOL [Suspect]
     Active Substance: PROPRANOLOL\PROPRANOLOL HYDROCHLORIDE
     Indication: OVERDOSE
     Dosage: UNK, UNKNOWN
     Route: 065
  4. OLANZAPINE APOTEX [Suspect]
     Active Substance: OLANZAPINE
     Indication: OVERDOSE
     Dosage: UNK UNK, UNKNOWN
     Route: 065

REACTIONS (8)
  - Pneumonia aspiration [Unknown]
  - Neuroleptic malignant syndrome [Unknown]
  - Seizure [Unknown]
  - Acute respiratory distress syndrome [Unknown]
  - Rhabdomyolysis [Unknown]
  - Toxic leukoencephalopathy [Unknown]
  - Quadriparesis [Unknown]
  - Overdose [Unknown]
